FAERS Safety Report 6883029-3 (Version None)
Quarter: 2010Q3

REPORT INFORMATION
  Report Type: 
  Country: None (occurrence: None)
  Receive Date: 20100727
  Receipt Date: 20100712
  Transmission Date: 20110219
  Serious: Yes (Other)
  Sender: FDA-Public Use
  Company Number: JHP201000208

PATIENT
  Age: 29 Year
  Sex: Male

DRUGS (1)
  1. DANTRIUM [Suspect]
     Indication: NEUROLEPTIC MALIGNANT SYNDROME
     Dosage: 40 MG, DAILY

REACTIONS (3)
  - CONDITION AGGRAVATED [None]
  - DYSPHAGIA [None]
  - SPUTUM RETENTION [None]
